FAERS Safety Report 13782814 (Version 2)
Quarter: 2017Q3

REPORT INFORMATION
  Report Type: Spontaneous
  Country: JP (occurrence: JP)
  Receive Date: 20170724
  Receipt Date: 20170810
  Transmission Date: 20171127
  Serious: Yes (Other)
  Sender: FDA-Public Use
  Company Number: JP-JNJFOC-20170714579

PATIENT
  Age: 26 Year
  Sex: Female
  Weight: 55 kg

DRUGS (9)
  1. PROPOFOL. [Concomitant]
     Active Substance: PROPOFOL
     Indication: SEDATION
     Route: 065
  2. ADRENALINE [Interacting]
     Active Substance: EPINEPHRINE
     Indication: LOCAL ANAESTHESIA
     Route: 065
  3. MIDAZOLAM [Concomitant]
     Active Substance: MIDAZOLAM HYDROCHLORIDE
     Indication: SEDATION
     Route: 042
  4. DESOGESTREL [Concomitant]
     Active Substance: DESOGESTREL
     Route: 048
  5. RAMOSETRON [Concomitant]
     Active Substance: RAMOSETRON HYDROCHLORIDE
     Route: 048
  6. METHYLPHENIDATE HYDROCHLORIDE. [Suspect]
     Active Substance: METHYLPHENIDATE HYDROCHLORIDE
     Indication: HYPERSOMNIA
     Route: 065
  7. MIDAZOLAM [Concomitant]
     Active Substance: MIDAZOLAM HYDROCHLORIDE
     Indication: SEDATION
     Route: 042
  8. LIDOCAINE HYDROCHLORIDE. [Concomitant]
     Active Substance: LIDOCAINE HYDROCHLORIDE
     Route: 065
  9. BROMAZEPAM [Concomitant]
     Active Substance: BROMAZEPAM
     Route: 048

REACTIONS (4)
  - Drug interaction [Unknown]
  - Product use in unapproved indication [Unknown]
  - Off label use [Unknown]
  - Hyperventilation [Unknown]
